FAERS Safety Report 7653962-3 (Version None)
Quarter: 2011Q3

REPORT INFORMATION
  Report Type: 
  Country: None (occurrence: None)
  Receive Date: 20110803
  Receipt Date: 20110728
  Transmission Date: 20111222
  Serious: Yes (Hospitalization, Other)
  Sender: FDA-Public Use
  Company Number: JP-PFIZER INC-2011172655

PATIENT
  Sex: Male

DRUGS (2)
  1. LYRICA [Suspect]
     Dosage: UNK
     Route: 048
     Dates: start: 20110721, end: 20110725
  2. METHYCOBAL [Concomitant]
     Dosage: UNK

REACTIONS (5)
  - BLOOD IMMUNOGLOBULIN E INCREASED [None]
  - DRUG ERUPTION [None]
  - FACE OEDEMA [None]
  - RASH GENERALISED [None]
  - ERYTHEMA [None]
